FAERS Safety Report 6055768-8 (Version None)
Quarter: 2009Q1

REPORT INFORMATION
  Report Type: 
  Country: None (occurrence: None)
  Receive Date: 20090128
  Receipt Date: 20090122
  Transmission Date: 20090719
  Serious: Yes (Other)
  Sender: FDA-Public Use
  Company Number: DE-SANOFI-SYNTHELABO-A04200900065

PATIENT
  Age: 85 Year
  Sex: Male

DRUGS (1)
  1. PLAVIX [Suspect]
     Indication: ARTERIOSCLEROSIS
     Dosage: UNK
     Route: 048

REACTIONS (2)
  - MACULAR DEGENERATION [None]
  - RETINAL VASCULAR DISORDER [None]
